FAERS Safety Report 15343877 (Version 1)
Quarter: 2018Q3

REPORT INFORMATION
  Report Type: Spontaneous
  Country: SK (occurrence: SK)
  Receive Date: 20180903
  Receipt Date: 20180903
  Transmission Date: 20181010
  Serious: Yes (Other)
  Sender: FDA-Public Use
  Company Number: PHHY2018SK065797

PATIENT
  Age: 44 Year
  Sex: Female
  Weight: 59 kg

DRUGS (3)
  1. ACIDUM FOLICUM [Concomitant]
     Active Substance: FOLIC ACID
     Indication: PRODUCT USED FOR UNKNOWN INDICATION
     Dosage: 1 DF, QW
     Route: 048
     Dates: start: 20121207
  2. COSENTYX [Suspect]
     Active Substance: SECUKINUMAB
     Indication: PSORIASIS
     Dosage: 150 MG, QMO
     Route: 058
     Dates: start: 20170925
  3. METHOTREXATE (METHOTREXATE SODIUM) [Suspect]
     Active Substance: METHOTREXATE SODIUM
     Indication: ALOPECIA
     Dosage: 10 MG, QW
     Route: 048
     Dates: start: 20171207, end: 201802

REACTIONS (2)
  - Alopecia [Not Recovered/Not Resolved]
  - Alopecia [Recovered/Resolved]

NARRATIVE: CASE EVENT DATE: 201705
